FAERS Safety Report 7349900-3 (Version None)
Quarter: 2011Q1

REPORT INFORMATION
  Report Type: 
  Country: None (occurrence: None)
  Receive Date: 20110309
  Receipt Date: 20110309
  Transmission Date: 20110831
  Serious: No
  Sender: FDA-Public Use
  Company Number: None

PATIENT
  Age: 62 Year
  Sex: Female

DRUGS (5)
  1. MULTICLEANSE FORMULA- CLEANSING COMPLEX WITH FIBERS [Suspect]
     Dates: start: 20090523, end: 20090603
  2. MULTICLEANSE FORMULA- CLEANSING COMPLEX WITH HERB [Suspect]
     Dates: start: 20090523, end: 20090603
  3. AUGMENTIN [Suspect]
     Dates: start: 20090603, end: 20090612
  4. DUAL ACTION CLEANSE-TOTAL BODY PURIFIER [Suspect]
     Dates: start: 20090317, end: 20090323
  5. DUAL ACTION CLEANSE-COLON CLEAR FORMULA [Suspect]
     Dates: start: 20090317, end: 20090323

REACTIONS (9)
  - LIVER TRANSPLANT [None]
  - BUDD-CHIARI SYNDROME [None]
  - VENOOCCLUSIVE LIVER DISEASE [None]
  - HEPATIC MASS [None]
  - PLEURAL EFFUSION [None]
  - METASTATIC NEOPLASM [None]
  - ENCEPHALOPATHY [None]
  - PORTAL HYPERTENSION [None]
  - PERITONITIS [None]
